FAERS Safety Report 11219974 (Version 4)
Quarter: 2015Q3

REPORT INFORMATION
  Report Type: Report from Study
  Country: NL (occurrence: NL)
  Receive Date: 20150625
  Receipt Date: 20150917
  Transmission Date: 20151125
  Serious: Yes (Hospitalization)
  Sender: FDA-Public Use
  Company Number: NL-ABBVIE-15P-114-1412989-00

PATIENT
  Age: 75 Year
  Sex: Female

DRUGS (1)
  1. DUODOPA [Suspect]
     Active Substance: CARBIDOPA\LEVODOPA
     Indication: PARKINSON^S DISEASE
     Dosage: 20/5/MG/ML
     Route: 050
     Dates: start: 20071022

REACTIONS (7)
  - On and off phenomenon [Not Recovered/Not Resolved]
  - Spinal osteoarthritis [Unknown]
  - Hernia [Unknown]
  - Back disorder [Unknown]
  - Radicular syndrome [Recovered/Resolved]
  - Pain in extremity [Not Recovered/Not Resolved]
  - Hyperkinesia [Not Recovered/Not Resolved]

NARRATIVE: CASE EVENT DATE: 20150617
